FAERS Safety Report 5192912-9 (Version None)
Quarter: 2006Q4

REPORT INFORMATION
  Report Type: 
  Country: None (occurrence: None)
  Receive Date: 20061228
  Receipt Date: 20060214
  Transmission Date: 20070319
  Serious: No
  Sender: FDA-Public Use
  Company Number: US-GLAXOSMITHKLINE-A0593670A

PATIENT
  Age: 48 Year
  Sex: Female

DRUGS (7)
  1. FLONASE [Suspect]
     Indication: ASTHMA
     Dosage: 4SPR PER DAY
     Route: 045
     Dates: start: 20060207
  2. SYNTHROID [Concomitant]
  3. INDAPAMIDE [Concomitant]
  4. AVAPRO [Concomitant]
  5. ALBUTEROL [Concomitant]
  6. FLOVENT [Concomitant]
  7. ALLEGRA [Concomitant]

REACTIONS (4)
  - ABNORMAL SENSATION IN EYE [None]
  - EYE PRURITUS [None]
  - FOREIGN BODY IN EYE [None]
  - SNEEZING [None]
